FAERS Safety Report 5261819-0 (Version None)
Quarter: 2007Q1

REPORT INFORMATION
  Report Type: 
  Country: None (occurrence: None)
  Receive Date: 20070310
  Receipt Date: 20070228
  Transmission Date: 20070707
  Serious: No
  Sender: FDA-Public Use
  Company Number: 2006UW07725

PATIENT
  Age: 43 Year
  Sex: Male
  Weight: 111.4 kg

DRUGS (12)
  1. SEROQUEL [Suspect]
     Indication: BIPOLAR DISORDER
     Route: 048
     Dates: start: 20010517, end: 20050307
  2. ABILIFY [Concomitant]
  3. CLOZARIL [Concomitant]
     Dates: start: 20051217
  4. GEODON [Concomitant]
     Dates: start: 20061129
  5. HALDOL [Concomitant]
  6. NAVANE [Concomitant]
  7. RISPERDAL [Concomitant]
  8. THORAZINE [Concomitant]
     Dates: start: 19850111
  9. TRILAFON [Concomitant]
  10. ZYPREXA [Concomitant]
  11. LUNESTA [Concomitant]
     Dates: start: 20061129
  12. LITHIUM CARBONATE [Concomitant]
     Dates: start: 19840710

REACTIONS (1)
  - DIABETES MELLITUS [None]
